APPROVED DRUG PRODUCT: GUAIFENESIN
Active Ingredient: GUAIFENESIN
Strength: 600MG
Dosage Form/Route: TABLET, EXTENDED RELEASE;ORAL
Application: A217780 | Product #001
Applicant: MARKSANS PHARMA LTD
Approved: Aug 21, 2023 | RLD: No | RS: No | Type: OTC